FAERS Safety Report 4657885-3 (Version None)
Quarter: 2005Q2

REPORT INFORMATION
  Report Type: 
  Country: None (occurrence: None)
  Receive Date: 20050421
  Receipt Date: 20040420
  Transmission Date: 20051028
  Serious: Yes (Hospitalization)
  Sender: FDA-Public Use
  Company Number: PIR #0404023

PATIENT
  Age: 69 Year
  Sex: Male
  Weight: 84.369 kg

DRUGS (15)
  1. HESPAN (6% HETASTARCH) [Suspect]
     Indication: HYPOVOLAEMIA
     Dosage: 3X500 ML, IV
     Route: 042
     Dates: start: 20040226
  2. 2 UNITES PACKED RED CELLS [Concomitant]
  3. ASPIRIN [Concomitant]
  4. CALCIUM GLUCONATE [Concomitant]
  5. CEFAZOLIN [Concomitant]
  6. FUROSEMIDE [Concomitant]
  7. USINOPRIL [Concomitant]
  8. SODIUM POLYSTYRENE SULFONATE [Concomitant]
  9. POTASSIUM CHLORIDE [Concomitant]
  10. MORPHINE [Concomitant]
  11. ALBUTEROL [Concomitant]
  12. MAGNESIUM SULFATE [Concomitant]
  13. LOVASTATON [Concomitant]
  14. RANITIDINE [Concomitant]
  15. SENNA [Concomitant]

REACTIONS (1)
  - COAGULOPATHY [None]
